FAERS Safety Report 9237801 (Version 3)
Quarter: 2013Q3

REPORT INFORMATION
  Report Type: Spontaneous
  Country: US (occurrence: US)
  Receive Date: 20130418
  Receipt Date: 20130909
  Transmission Date: 20140515
  Serious: No
  Sender: FDA-Public Use
  Company Number: US-BIOGENIDEC-2013BI033886

PATIENT
  Age: 49 Year
  Sex: Female

DRUGS (1)
  1. TYSABRI [Suspect]
     Indication: MULTIPLE SCLEROSIS
     Route: 042
     Dates: start: 20091215

REACTIONS (16)
  - Balance disorder [Not Recovered/Not Resolved]
  - Muscular weakness [Not Recovered/Not Resolved]
  - Vision blurred [Not Recovered/Not Resolved]
  - Diplopia [Recovered/Resolved]
  - Visual impairment [Not Recovered/Not Resolved]
  - Anxiety [Recovered/Resolved]
  - Vitamin B12 decreased [Not Recovered/Not Resolved]
  - Adverse drug reaction [Recovered/Resolved]
  - Vitamin D decreased [Not Recovered/Not Resolved]
  - Nervousness [Recovered/Resolved]
  - Vaginal infection [Recovered/Resolved]
  - Constipation [Not Recovered/Not Resolved]
  - Fatigue [Recovered/Resolved]
  - Multiple sclerosis [Not Recovered/Not Resolved]
  - Sinusitis [Not Recovered/Not Resolved]
  - Malaise [Not Recovered/Not Resolved]
